FAERS Safety Report 9069432 (Version 2)
Quarter: 2013Q1

REPORT INFORMATION
  Report Type: Spontaneous
  Country: US (occurrence: US)
  Receive Date: 20130215
  Receipt Date: 20130308
  Transmission Date: 20140127
  Serious: Yes (Other)
  Sender: FDA-Public Use
  Company Number: US-TEVA-385923USA

PATIENT
  Sex: Female

DRUGS (1)
  1. FENTORA [Suspect]
     Indication: CANCER PAIN
     Dosage: 9600 MICROGRAM DAILY; 2 TABLETS
     Route: 002

REACTIONS (3)
  - Cancer pain [Not Recovered/Not Resolved]
  - Inappropriate schedule of drug administration [Unknown]
  - Drug effect decreased [Unknown]
